FAERS Safety Report 15616902 (Version 3)
Quarter: 2023Q2

REPORT INFORMATION
  Report Type: Spontaneous
  Country: US (occurrence: US)
  Receive Date: 20181114
  Receipt Date: 20230529
  Transmission Date: 20230722
  Serious: Yes (Hospitalization, Other)
  Sender: FDA-Public Use
  Company Number: US-ASTELLAS-2018US047796

PATIENT
  Age: 51 Year
  Sex: Male

DRUGS (3)
  1. BENDAMUSTINE HYDROCHLORIDE [Suspect]
     Active Substance: BENDAMUSTINE HYDROCHLORIDE
     Indication: Non-Hodgkin^s lymphoma
     Dosage: 90 MG/M2, CYCLIC (ON DAYS 1 AND 2 OF A 28-DAY CYCLE (TOTAL CUMULATIVE DOSE OF 180 MG/M2), 6 CYCLES)
     Route: 042
  2. RITUXIMAB [Concomitant]
     Active Substance: RITUXIMAB
     Indication: Non-Hodgkin^s lymphoma
     Dosage: UNK UNK, CYCLIC
     Route: 065
  3. AMLODIPINE BESYLATE\BENAZEPRIL HYDROCHLORIDE [Concomitant]
     Active Substance: AMLODIPINE BESYLATE\BENAZEPRIL HYDROCHLORIDE
     Indication: Essential hypertension
     Dosage: UNK, UNKNOWN FREQ.
     Route: 065

REACTIONS (3)
  - Gitelman^s syndrome [Recovered/Resolved]
  - Blood aldosterone decreased [Recovered/Resolved]
  - Prescribed underdose [Unknown]
